FAERS Safety Report 22275102 (Version 1)
Quarter: 2023Q2

REPORT INFORMATION
  Report Type: Spontaneous
  Country: DE (occurrence: DE)
  Receive Date: 20230502
  Receipt Date: 20230502
  Transmission Date: 20230721
  Serious: Yes (Other)
  Sender: FDA-Public Use
  Company Number: None

PATIENT
  Sex: Female

DRUGS (1)
  1. LANTUS SOLOSTAR [Suspect]
     Active Substance: INSULIN GLARGINE
     Indication: Type 1 diabetes mellitus
     Dosage: UNK
     Route: 065

REACTIONS (5)
  - Arrhythmia [Unknown]
  - Memory impairment [Unknown]
  - Palpitations [Unknown]
  - Nervous system disorder [Unknown]
  - Product impurity [Unknown]

NARRATIVE: CASE EVENT DATE: 20230101
